FAERS Safety Report 13403354 (Version 1)
Quarter: 2017Q2

REPORT INFORMATION
  Report Type: Spontaneous
  Country: US (occurrence: US)
  Receive Date: 20170404
  Receipt Date: 20170404
  Transmission Date: 20170830
  Serious: Yes (Hospitalization, Disabling)
  Sender: FDA-Public Use
  Company Number: None

PATIENT
  Age: 51 Year
  Sex: Female

DRUGS (15)
  1. BENLYSTA [Suspect]
     Active Substance: BELIMUMAB
     Indication: SYSTEMIC LUPUS ERYTHEMATOSUS
     Dosage: ?          OTHER FREQUENCY:ONCE A MONTH;?
     Dates: start: 20160223, end: 20161010
  2. N-ACETYLCYSTEINE [Concomitant]
     Active Substance: ACETYLCYSTEINE
  3. ADVIL [Concomitant]
     Active Substance: IBUPROFEN
  4. NOVOLOG [Concomitant]
     Active Substance: INSULIN ASPART
  5. FLUDROCORTISONE [Concomitant]
     Active Substance: FLUDROCORTISONE
  6. ASPIRIN. [Concomitant]
     Active Substance: ASPIRIN
  7. SUPER B COMPLEX [Concomitant]
     Active Substance: CYANOCOBALAMIN\DEXPANTHENOL\NIACINAMIDE\PYRIDOXINE HYDROCHLORIDE\RIBOFLAVIN 5^-PHOSPHATE SODIUM\THIAMINE HYDROCHLORIDE\VITAMIN B COMPLEX
  8. SELENIUM [Concomitant]
     Active Substance: SELENIUM
  9. SYNTHROID [Concomitant]
     Active Substance: LEVOTHYROXINE SODIUM
  10. VERAPAMIL [Concomitant]
     Active Substance: VERAPAMIL HYDROCHLORIDE
  11. VITAMIN C [Concomitant]
     Active Substance: ASCORBIC ACID
  12. IRON [Concomitant]
     Active Substance: IRON
  13. DOANS [Concomitant]
  14. CLONIDINE. [Concomitant]
     Active Substance: CLONIDINE
  15. DHEA [Concomitant]
     Active Substance: PRASTERONE

REACTIONS (9)
  - Pain [None]
  - Lymphoedema [None]
  - Cardiovascular disorder [None]
  - Proteinuria [None]
  - Ketonuria [None]
  - Cellulitis [None]
  - Urobilinogen urine [None]
  - Hypopituitarism [None]
  - Blood glucose increased [None]

NARRATIVE: CASE EVENT DATE: 20160223
